FAERS Safety Report 8044822-7 (Version None)
Quarter: 2012Q1

REPORT INFORMATION
  Report Type: 
  Country: None (occurrence: None)
  Receive Date: 20120113
  Receipt Date: 20120106
  Transmission Date: 20120608
  Serious: Yes (Hospitalization, Other)
  Sender: FDA-Public Use
  Company Number: US-BAYER-2011-036943

PATIENT
  Age: 20 Year
  Sex: Female
  Weight: 86.168 kg

DRUGS (6)
  1. ZANTAC [Concomitant]
     Indication: ABDOMINAL PAIN UPPER
     Dosage: 300 MG, BID
     Route: 048
     Dates: start: 20100307
  2. PEPTO [Concomitant]
  3. YAZ [Suspect]
     Indication: CONTRACEPTION
     Dosage: UNK
     Dates: start: 20090601, end: 20100301
  4. LOVENOX [Concomitant]
  5. CEFTIN [Concomitant]
  6. ROLAIDS [Concomitant]

REACTIONS (8)
  - EMOTIONAL DISTRESS [None]
  - CHOLECYSTITIS CHRONIC [None]
  - PANCREATITIS [None]
  - PAIN [None]
  - ANXIETY [None]
  - CONVULSION [None]
  - GENERAL PHYSICAL HEALTH DETERIORATION [None]
  - GALLBLADDER DISORDER [None]
